FAERS Safety Report 10020574 (Version 1)
Quarter: 2014Q1

REPORT INFORMATION
  Report Type: Spontaneous
  Country: US (occurrence: US)
  Receive Date: 20140319
  Receipt Date: 20140319
  Transmission Date: 20141002
  Serious: Yes (Other)
  Sender: FDA-Public Use
  Company Number: PHHY2014US029137

PATIENT
  Age: 22 Year
  Sex: Male

DRUGS (15)
  1. BACLOFEN [Suspect]
     Indication: MUSCLE SPASTICITY
     Route: 048
  2. BACLOFEN [Suspect]
     Indication: DYSTONIA
  3. BACLOFEN INTRATHECAL [Suspect]
     Indication: MUSCLE SPASTICITY
     Dosage: }1050 UG PER DAY
     Route: 037
  4. BACLOFEN INTRATHECAL [Suspect]
     Indication: DYSTONIA
     Dosage: 890 UG/DAY
     Route: 037
  5. CLONAZEPAM [Suspect]
     Indication: DYSTONIA
  6. LORAZEPAM [Suspect]
     Indication: DYSTONIA
     Dosage: 2 MG/DAY
  7. LORAZEPAM [Suspect]
     Indication: PARAPARESIS
     Dosage: 70 MG/DAY
     Route: 042
  8. LORAZEPAM [Suspect]
     Dosage: 10 MG/DAY
  9. LORAZEPAM [Suspect]
     Dosage: 20 MG/DAY
  10. TRIHEXYPHENIDYL [Suspect]
     Indication: DYSTONIA
  11. CARBIDOPA, LEVODOPA [Suspect]
     Indication: DYSTONIA
  12. ALPRAZOLAM [Suspect]
     Indication: DYSTONIA
  13. CHLORDIAZEPOXIDE [Suspect]
     Indication: DYSTONIA
  14. VALIUM [Suspect]
     Indication: DYSTONIA
  15. TACROLIMUS [Concomitant]
     Indication: TRANSPLANT REJECTION
     Dosage: 2.5 MG, BID

REACTIONS (6)
  - Drug withdrawal syndrome [Unknown]
  - Lethargy [Unknown]
  - Sleep apnoea syndrome [Recovered/Resolved]
  - Dysphagia [Recovered/Resolved]
  - Therapeutic response decreased [Unknown]
  - Drug ineffective [Unknown]
